FAERS Safety Report 26207939 (Version 1)
Quarter: 2025Q4

REPORT INFORMATION
  Report Type: Spontaneous
  Country: CA (occurrence: None)
  Receive Date: 20251229
  Receipt Date: 20251229
  Transmission Date: 20260117
  Serious: Yes (Hospitalization, Disabling, Other)
  Sender: ORGANON
  Company Number: CA-ORGANON-O2512CAN002009

PATIENT
  Age: 72 Year
  Sex: Male

DRUGS (91)
  1. FOSAMAX [Suspect]
     Active Substance: ALENDRONATE SODIUM
     Indication: Product used for unknown indication
     Dosage: 50 MILLIGRAM, 1 EVERY 1 WEEKS
     Route: 061
  2. FOSAMAX [Suspect]
     Active Substance: ALENDRONATE SODIUM
     Dosage: 70 MILLIGRAM, 1 EVERY 1 WEEKS
     Route: 061
  3. FOSAMAX [Suspect]
     Active Substance: ALENDRONATE SODIUM
     Dosage: 70 MILLIGRAM
     Route: 065
  4. FOSAMAX [Suspect]
     Active Substance: ALENDRONATE SODIUM
     Dosage: 70 MILLIGRAM
     Route: 061
  5. FOSAMAX [Suspect]
     Active Substance: ALENDRONATE SODIUM
     Indication: Product used for unknown indication
     Dosage: 70 MILLIGRAM
     Route: 061
  6. ADVAIR HFA [Suspect]
     Active Substance: FLUTICASONE PROPIONATE\SALMETEROL XINAFOATE
     Indication: Eosinophilic granulomatosis with polyangiitis
     Dosage: 1 DOSAGE FORM
     Route: 065
  7. ADVAIR HFA [Suspect]
     Active Substance: FLUTICASONE PROPIONATE\SALMETEROL XINAFOATE
     Dosage: 10 MILLIGRAM
     Route: 065
  8. ADVAIR HFA [Suspect]
     Active Substance: FLUTICASONE PROPIONATE\SALMETEROL XINAFOATE
     Dosage: 5 MILLIGRAM
     Route: 065
  9. ADVAIR HFA [Suspect]
     Active Substance: FLUTICASONE PROPIONATE\SALMETEROL XINAFOATE
     Dosage: 5 MILLIGRAM
     Route: 065
  10. ALBUTEROL [Suspect]
     Active Substance: ALBUTEROL
     Indication: Eosinophilic granulomatosis with polyangiitis
     Dosage: UNK
     Route: 065
  11. AZELASTINE HYDROCHLORIDE AND FLUTICASONE PROPIONATE [Suspect]
     Active Substance: AZELASTINE HYDROCHLORIDE\FLUTICASONE PROPIONATE
     Indication: Product used for unknown indication
     Dosage: UNK
     Route: 065
  12. BEVACIZUMAB [Suspect]
     Active Substance: BEVACIZUMAB
     Indication: Product used for unknown indication
     Dosage: 175 MILLIGRAM, 1 EVERY 1 DAYS
  13. BEVACIZUMAB [Suspect]
     Active Substance: BEVACIZUMAB
     Dosage: 120 MILLIGRAM, 1 EVERY 1 DAYS
  14. BICALUTAMIDE [Suspect]
     Active Substance: BICALUTAMIDE
     Indication: Product used for unknown indication
     Dosage: 50 MILLIGRAM, 1 EVERY 1 DAY
     Route: 061
  15. BROMHEXINE HYDROCHLORIDE [Suspect]
     Active Substance: BROMHEXINE HYDROCHLORIDE
     Indication: Product used for unknown indication
     Dosage: UNK
     Route: 065
  16. CALCIUM [Suspect]
     Active Substance: CALCIUM
     Indication: Eosinophilic granulomatosis with polyangiitis
     Dosage: UNK
     Route: 065
  17. CALCIUM [Suspect]
     Active Substance: CALCIUM
     Dosage: UNK
     Route: 065
  18. CALCIUM CARBONATE [Suspect]
     Active Substance: CALCIUM CARBONATE
     Indication: Eosinophilic granulomatosis with polyangiitis
     Dosage: UNK
     Route: 065
  19. CALCIUM GLUCONATE [Suspect]
     Active Substance: CALCIUM GLUCONATE
     Indication: Product used for unknown indication
     Dosage: UNK
     Route: 065
  20. CICLESONIDE [Suspect]
     Active Substance: CICLESONIDE
     Indication: Product used for unknown indication
     Dosage: UNK
     Route: 061
  21. CYCLOPHOSPHAMIDE [Suspect]
     Active Substance: CYCLOPHOSPHAMIDE
     Indication: Product used for unknown indication
     Dosage: 175 MILLIGRAM
     Route: 061
  22. CYCLOPHOSPHAMIDE [Suspect]
     Active Substance: CYCLOPHOSPHAMIDE
     Dosage: 1200 MILLIGRAM
  23. ERGOCALCIFEROL [Suspect]
     Active Substance: ERGOCALCIFEROL
     Indication: Product used for unknown indication
     Dosage: UNK
     Route: 065
  24. FLUTICASONE [Suspect]
     Active Substance: FLUTICASONE
     Indication: Eosinophilic granulomatosis with polyangiitis
     Dosage: UNK
     Route: 065
  25. FLUTICASONE PROPIONATE\SALMETEROL XINAFOATE [Suspect]
     Active Substance: FLUTICASONE PROPIONATE\SALMETEROL XINAFOATE
     Indication: Product used for unknown indication
     Dosage: 1 DOSAGE FORM
     Route: 065
  26. FLUTICASONE PROPIONATE\SALMETEROL XINAFOATE [Suspect]
     Active Substance: FLUTICASONE PROPIONATE\SALMETEROL XINAFOATE
     Indication: Eosinophilic granulomatosis with polyangiitis
     Dosage: 5 MILLIGRAM
     Route: 065
  27. FLUTICASONE PROPIONATE\SALMETEROL XINAFOATE [Suspect]
     Active Substance: FLUTICASONE PROPIONATE\SALMETEROL XINAFOATE
     Dosage: 100 MILLIGRAM
     Route: 065
  28. FLUTICASONE PROPIONATE\SALMETEROL XINAFOATE [Suspect]
     Active Substance: FLUTICASONE PROPIONATE\SALMETEROL XINAFOATE
     Dosage: 2 DOSAGE FORM
     Route: 065
  29. FLUTICASONE PROPIONATE\SALMETEROL XINAFOATE [Suspect]
     Active Substance: FLUTICASONE PROPIONATE\SALMETEROL XINAFOATE
     Dosage: 1 DOSAGE FORM
     Route: 065
  30. FOLATE SODIUM [Suspect]
     Active Substance: FOLATE SODIUM
     Indication: Product used for unknown indication
     Dosage: 5 MILLIGRAM
     Route: 065
  31. IOBITRIDOL [Suspect]
     Active Substance: IOBITRIDOL
     Indication: Product used for unknown indication
     Dosage: UNK
     Route: 065
  32. IOBITRIDOL [Suspect]
     Active Substance: IOBITRIDOL
     Dosage: UNK
     Route: 065
  33. IOBITRIDOL [Suspect]
     Active Substance: IOBITRIDOL
     Dosage: UNK
     Route: 065
  34. IOBITRIDOL [Suspect]
     Active Substance: IOBITRIDOL
     Dosage: UNK
     Route: 065
  35. LANSOPRAZOLE [Suspect]
     Active Substance: LANSOPRAZOLE
     Indication: Product used for unknown indication
     Dosage: 30 MILLIGRAM
     Route: 065
  36. LANSOPRAZOLE [Suspect]
     Active Substance: LANSOPRAZOLE
     Indication: Product used for unknown indication
     Dosage: 30 MILLIGRAM, 1 EVERY 1 DAY
     Route: 065
  37. METHOTREXATE SODIUM [Suspect]
     Active Substance: METHOTREXATE SODIUM
     Indication: Product used for unknown indication
     Dosage: UNK
     Route: 065
  38. METHOTREXATE SODIUM [Suspect]
     Active Substance: METHOTREXATE SODIUM
     Dosage: UNK
     Route: 065
  39. METHOTREXATE SODIUM [Suspect]
     Active Substance: METHOTREXATE SODIUM
     Dosage: UNK
     Route: 065
  40. METHOTREXATE SODIUM [Suspect]
     Active Substance: METHOTREXATE SODIUM
     Dosage: UNK
     Route: 065
  41. METHOTREXATE SODIUM [Suspect]
     Active Substance: METHOTREXATE SODIUM
     Dosage: UNK
     Route: 065
  42. METHOTREXATE SODIUM [Suspect]
     Active Substance: METHOTREXATE SODIUM
     Dosage: UNK
     Route: 065
  43. METHOTREXATE SODIUM [Suspect]
     Active Substance: METHOTREXATE SODIUM
     Dosage: UNK
     Route: 065
  44. METHOTREXATE SODIUM [Suspect]
     Active Substance: METHOTREXATE SODIUM
     Dosage: UNK
     Route: 065
  45. METHOTREXATE SODIUM [Suspect]
     Active Substance: METHOTREXATE SODIUM
     Dosage: UNK
     Route: 065
  46. METHOTREXATE SODIUM [Suspect]
     Active Substance: METHOTREXATE SODIUM
     Dosage: UNK
     Route: 065
  47. METHOTREXATE SODIUM [Suspect]
     Active Substance: METHOTREXATE SODIUM
     Dosage: 20 MILLIGRAM
     Route: 065
  48. METHOTREXATE SODIUM [Suspect]
     Active Substance: METHOTREXATE SODIUM
     Dosage: 25 MILLIGRAM
     Route: 065
  49. METHOTREXATE SODIUM [Suspect]
     Active Substance: METHOTREXATE SODIUM
     Dosage: 7.5 MILLIGRAM
     Route: 065
  50. METHOTREXATE SODIUM [Suspect]
     Active Substance: METHOTREXATE SODIUM
     Dosage: 25 MILLIGRAM
     Route: 065
  51. METHOTREXATE SODIUM [Suspect]
     Active Substance: METHOTREXATE SODIUM
     Dosage: 15 MILLIGRAM
     Route: 065
  52. METHOTREXATE SODIUM [Suspect]
     Active Substance: METHOTREXATE SODIUM
     Dosage: 20 MILLIGRAM
     Route: 065
  53. METHOTREXATE SODIUM [Suspect]
     Active Substance: METHOTREXATE SODIUM
     Dosage: 25 MILLIGRAM, 1 EVERY 1 WEEK
     Route: 065
  54. METHOTREXATE SODIUM [Suspect]
     Active Substance: METHOTREXATE SODIUM
     Dosage: 7.5 MILLIGRAM, 1 EVERY 1 WEEK
     Route: 065
  55. METHOTREXATE SODIUM [Suspect]
     Active Substance: METHOTREXATE SODIUM
     Dosage: 7.5 MILLIGRAM
     Route: 065
  56. METHOTREXATE SODIUM [Suspect]
     Active Substance: METHOTREXATE SODIUM
     Dosage: 25 MILLIGRAM, 1 EVERY 1 WEEK
     Route: 065
  57. METHOTREXATE SODIUM [Suspect]
     Active Substance: METHOTREXATE SODIUM
     Dosage: 15 MILLIGRAM, 1 EVERY 1 WEEK
     Route: 065
  58. METHOTREXATE SODIUM [Suspect]
     Active Substance: METHOTREXATE SODIUM
     Dosage: 15 MILLIGRAM
     Route: 065
  59. OMNARIS [Suspect]
     Active Substance: CICLESONIDE
     Indication: Product used for unknown indication
     Dosage: 2 DOSAGE FORM
     Route: 065
  60. OMNARIS [Suspect]
     Active Substance: CICLESONIDE
     Indication: Product used for unknown indication
     Dosage: 2 DOSAGE FORM, INTRA-NASAL
     Route: 065
  61. PREDNISONE ACETATE [Suspect]
     Active Substance: PREDNISONE ACETATE
     Indication: Product used for unknown indication
     Dosage: 10 MILLIGRAM, 1 EVERY 1 DAYS
     Route: 065
  62. PREDNISONE ACETATE [Suspect]
     Active Substance: PREDNISONE ACETATE
     Dosage: 1 MILLIGRAM
     Route: 065
  63. PREDNISONE ACETATE [Suspect]
     Active Substance: PREDNISONE ACETATE
     Dosage: 2 MILLIGRAM, 1 EVERY 1 DAYS
     Route: 065
  64. PREDNISONE ACETATE [Suspect]
     Active Substance: PREDNISONE ACETATE
     Dosage: UNK
     Route: 065
  65. PREDNISONE ACETATE [Suspect]
     Active Substance: PREDNISONE ACETATE
     Dosage: 2 MILLIGRAM, 1 EVERY 1 DAYS
     Route: 065
  66. PREDNISONE ACETATE [Suspect]
     Active Substance: PREDNISONE ACETATE
     Dosage: 5 MILLIGRAM, 1 EVERY 1 DAYS
     Route: 065
  67. PREDNISONE ACETATE [Suspect]
     Active Substance: PREDNISONE ACETATE
     Dosage: 2 MILLIGRAM, 1 EVERY 1 DAYS
     Route: 065
  68. PREDNISONE ACETATE [Suspect]
     Active Substance: PREDNISONE ACETATE
     Dosage: 7.5 MILLIGRAM, 1 EVERY 1 DAYS
     Route: 065
  69. PREDNISONE ACETATE [Suspect]
     Active Substance: PREDNISONE ACETATE
     Dosage: UNK
     Route: 065
  70. PREDNISONE ACETATE [Suspect]
     Active Substance: PREDNISONE ACETATE
     Dosage: UNK
     Route: 065
  71. RAMIPRIL [Suspect]
     Active Substance: RAMIPRIL
     Indication: Product used for unknown indication
     Dosage: 10 MILLIGRAM, 1 EVERY 1 DAYS
     Route: 065
  72. RAMIPRIL [Suspect]
     Active Substance: RAMIPRIL
     Dosage: 10 MILLIGRAM
     Route: 065
  73. RAMIPRIL [Suspect]
     Active Substance: RAMIPRIL
     Dosage: 10 MILLIGRAM
     Route: 065
  74. RAMIPRIL [Suspect]
     Active Substance: RAMIPRIL
     Indication: Product used for unknown indication
     Dosage: UNK
     Route: 061
  75. SODIUM BICARBONATE\SODIUM CHLORIDE [Suspect]
     Active Substance: SODIUM BICARBONATE\SODIUM CHLORIDE
     Indication: Product used for unknown indication
     Dosage: UNK
     Route: 061
  76. SODIUM BICARBONATE\SODIUM CHLORIDE [Suspect]
     Active Substance: SODIUM BICARBONATE\SODIUM CHLORIDE
     Indication: Product used for unknown indication
     Dosage: SOLUTION NASAL
  77. SODIUM BICARBONATE [Suspect]
     Active Substance: SODIUM BICARBONATE
     Indication: Product used for unknown indication
     Dosage: UNK
     Route: 061
  78. SODIUM BICARBONATE [Suspect]
     Active Substance: SODIUM BICARBONATE
     Dosage: UNK
     Route: 061
  79. SODIUM BICARBONATE [Suspect]
     Active Substance: SODIUM BICARBONATE
     Dosage: UNK
     Route: 065
  80. SULFAMETHOXAZOLE\TRIMETHOPRIM [Suspect]
     Active Substance: SULFAMETHOXAZOLE\TRIMETHOPRIM
     Indication: Product used for unknown indication
     Dosage: UNK
     Route: 065
  81. SULFAMETHOXAZOLE\TRIMETHOPRIM [Suspect]
     Active Substance: SULFAMETHOXAZOLE\TRIMETHOPRIM
     Dosage: UNK
     Route: 065
  82. VENTOLIN [Suspect]
     Active Substance: ALBUTEROL SULFATE
     Indication: Eosinophilic granulomatosis with polyangiitis
     Dosage: UNK
     Route: 065
  83. VITAMIN D [Suspect]
     Active Substance: VITAMIN D NOS
     Indication: Product used for unknown indication
     Dosage: UNK
     Route: 065
  84. GOSERELIN [Suspect]
     Active Substance: GOSERELIN
     Indication: Product used for unknown indication
     Dosage: UNK
  85. GOSERELIN [Suspect]
     Active Substance: GOSERELIN
     Dosage: UNK
  86. GOSERELIN [Suspect]
     Active Substance: GOSERELIN
     Dosage: UNK
  87. GOSERELIN [Suspect]
     Active Substance: GOSERELIN
     Dosage: UNK
  88. GOSERELIN [Suspect]
     Active Substance: GOSERELIN
     Indication: Product used for unknown indication
  89. VITAMIN D2 [Concomitant]
     Active Substance: ERGOCALCIFEROL
     Indication: Product used for unknown indication
     Dosage: UNK
     Route: 065
  90. NUCALA [Concomitant]
     Active Substance: MEPOLIZUMAB
     Indication: Eosinophilic granulomatosis with polyangiitis
     Dosage: 300 MILLIGRAM, 1 EVERY 1 MONTHS
  91. NUCALA [Concomitant]
     Active Substance: MEPOLIZUMAB
     Dosage: 300 MILLIGRAM, 1 EVERY 1 MONTHS

REACTIONS (35)
  - Airway remodelling [Unknown]
  - Asthma [Unknown]
  - Atopy [Unknown]
  - Blood immunoglobulin E increased [Unknown]
  - Cardiac septal defect [Unknown]
  - Central nervous system mass [Unknown]
  - Chronic sinusitis [Unknown]
  - Condition aggravated [Unknown]
  - Eosinophil count decreased [Unknown]
  - Eosinophil count increased [Unknown]
  - Eosinophilic granulomatosis with polyangiitis [Unknown]
  - Eosinophilic myocarditis [Unknown]
  - Haematuria [Unknown]
  - Haemorrhage [Unknown]
  - Hypertension [Unknown]
  - Lacrimation increased [Unknown]
  - Lymphopenia [Unknown]
  - Memory impairment [Unknown]
  - Microangiopathy [Unknown]
  - Nasal polyps [Unknown]
  - Nodule [Unknown]
  - Obesity [Unknown]
  - Obstructive airways disorder [Unknown]
  - Pneumonia [Unknown]
  - Productive cough [Unknown]
  - Prostate cancer [Unknown]
  - Renal disorder [Unknown]
  - Respiratory symptom [Unknown]
  - Respiratory tract infection [Unknown]
  - Ventricular hypokinesia [Unknown]
  - Viral infection [Unknown]
  - Confusional state [Unknown]
  - Wall motion score index abnormal [Unknown]
  - Eosinophilic pneumonia [Unknown]
  - Product use in unapproved indication [Unknown]
